FAERS Safety Report 5145554-5 (Version None)
Quarter: 2006Q4

REPORT INFORMATION
  Report Type: 
  Country: None (occurrence: None)
  Receive Date: 20061102
  Receipt Date: 20061025
  Transmission Date: 20070319
  Serious: Yes (Hospitalization)
  Sender: FDA-Public Use
  Company Number: 2006AL003296

PATIENT
  Age: 21 Year
  Sex: Male

DRUGS (2)
  1. FLUOXETINE [Suspect]
     Dosage: 20 MG; QD; PO
     Route: 048
  2. FORTIMEL [Concomitant]

REACTIONS (7)
  - ANAEMIA [None]
  - CONFUSIONAL STATE [None]
  - HYPERPYREXIA [None]
  - HYPONATRAEMIA [None]
  - RETICULOCYTE COUNT INCREASED [None]
  - SEROTONIN SYNDROME [None]
  - WHITE BLOOD CELL COUNT INCREASED [None]
